FAERS Safety Report 14652259 (Version 1)
Quarter: 2018Q1

REPORT INFORMATION
  Report Type: Spontaneous
  Country: DE (occurrence: DE)
  Receive Date: 20180318
  Receipt Date: 20180318
  Transmission Date: 20180509
  Serious: Yes (Hospitalization)
  Sender: FDA-Public Use
  Company Number: PHHY2018DE044643

PATIENT
  Age: 54 Year
  Sex: Male
  Weight: 96 kg

DRUGS (6)
  1. MTX SANDOZ [Suspect]
     Active Substance: METHOTREXATE SODIUM
     Indication: PRODUCT USED FOR UNKNOWN INDICATION
     Dosage: 10 MG, QW
     Route: 065
     Dates: start: 20150901, end: 20151213
  2. MTX SANDOZ [Suspect]
     Active Substance: METHOTREXATE SODIUM
     Dosage: 5 MG, UNK
     Route: 065
  3. HUMIRA [Suspect]
     Active Substance: ADALIMUMAB
     Indication: RHEUMATOID ARTHRITIS
     Route: 058
     Dates: start: 20070301, end: 20151213
  4. HUMIRA [Suspect]
     Active Substance: ADALIMUMAB
     Dosage: UNK
     Route: 058
     Dates: start: 20160203, end: 20160424
  5. MTX SANDOZ [Suspect]
     Active Substance: METHOTREXATE SODIUM
     Dosage: 10 MG, QW
     Route: 065
     Dates: start: 20160203
  6. MTX SANDOZ [Suspect]
     Active Substance: METHOTREXATE SODIUM
     Dosage: 10 MG, QW
     Route: 065
     Dates: start: 20160101

REACTIONS (4)
  - Arthralgia [Recovered/Resolved]
  - Joint range of motion decreased [Recovered/Resolved]
  - Empyema [Recovered/Resolved]
  - Drug effect decreased [Unknown]

NARRATIVE: CASE EVENT DATE: 20151213
